FAERS Safety Report 9915711 (Version 1)
Quarter: 2014Q1

REPORT INFORMATION
  Report Type: Spontaneous
  Country: FR (occurrence: None)
  Receive Date: 20140218
  Receipt Date: 20140218
  Transmission Date: 20141002
  Serious: Yes (Hospitalization)
  Sender: FDA-Public Use
  Company Number: AUR-APL-2014-01651

PATIENT
  Age: 65 Year
  Sex: Male

DRUGS (3)
  1. METFORMIN [Suspect]
     Indication: PRODUCT USED FOR UNKNOWN INDICATION
  2. TAHOR (ATORVASTATIN CALCIUM) [Suspect]
     Indication: HYPERCHOLESTEROLAEMIA
     Dosage: (40 MG), UNKNOWN
  3. ATORVASTATINE [Suspect]
     Indication: HYPERCHOLESTEROLAEMIA
     Dosage: (40 MG), UNKNOWN

REACTIONS (2)
  - Intestinal obstruction [None]
  - Colon cancer [None]
